FAERS Safety Report 22256214 (Version 3)
Quarter: 2025Q2

REPORT INFORMATION
  Report Type: Report from Study
  Country: US (occurrence: US)
  Receive Date: 20230426
  Receipt Date: 20250516
  Transmission Date: 20250716
  Serious: Yes (Death)
  Sender: ROCHE
  Company Number: US-ROCHE-3317267

PATIENT
  Age: 83 Year
  Sex: Female
  Weight: 87.54 kg

DRUGS (10)
  1. ACTEMRA [Suspect]
     Active Substance: TOCILIZUMAB
     Indication: Rheumatoid arthritis
     Dosage: 162 MG SUBCUTANEOUS EVERY WEEK
     Route: 058
  2. ACTEMRA [Suspect]
     Active Substance: TOCILIZUMAB
     Indication: Giant cell arteritis
  3. PREDNISONE [Concomitant]
     Active Substance: PREDNISONE
     Indication: Rheumatoid arthritis
     Route: 048
  4. DILTIAZEM [Concomitant]
     Active Substance: DILTIAZEM
  5. SPIRONOLACTONE [Concomitant]
     Active Substance: SPIRONOLACTONE
  6. LISINOPRIL [Concomitant]
     Active Substance: LISINOPRIL
  7. ASPIRIN [Concomitant]
     Active Substance: ASPIRIN
     Route: 048
  8. METHOTREXATE [Concomitant]
     Active Substance: METHOTREXATE
     Indication: Rheumatoid arthritis
     Route: 048
  9. FOLIC ACID [Concomitant]
     Active Substance: FOLIC ACID
     Indication: Rheumatoid arthritis
     Route: 048
  10. GABAPENTIN [Concomitant]
     Active Substance: GABAPENTIN

REACTIONS (15)
  - Death [Fatal]
  - Blood glucose increased [Unknown]
  - Glomerular filtration rate decreased [Unknown]
  - Red cell distribution width increased [Unknown]
  - Lymphocyte count decreased [Unknown]
  - Red blood cell sedimentation rate increased [Unknown]
  - C-reactive protein increased [Unknown]
  - Neutrophil count increased [Unknown]
  - Blood albumin decreased [Unknown]
  - Protein total decreased [Unknown]
  - White blood cell count increased [Unknown]
  - Haemoglobin increased [Unknown]
  - Eosinophil count decreased [Unknown]
  - Monocyte count increased [Unknown]
  - Haematocrit increased [Unknown]

NARRATIVE: CASE EVENT DATE: 20220110
